FAERS Safety Report 19100130 (Version 1)
Quarter: 2021Q2

REPORT INFORMATION
  Report Type: Spontaneous
  Country: GB (occurrence: GB)
  Receive Date: 20210407
  Receipt Date: 20210407
  Transmission Date: 20210717
  Serious: Yes (Death, Hospitalization)
  Sender: FDA-Public Use
  Company Number: GB-DEXPHARM-20210427

PATIENT
  Age: 78 Year
  Sex: Female

DRUGS (16)
  1. ADCAL?D3 [Concomitant]
     Active Substance: CALCIUM CARBONATE\CHOLECALCIFEROL
  2. DOMPERIDONE MALEATE [Suspect]
     Active Substance: DOMPERIDONE MALEATE
     Indication: GASTROOESOPHAGEAL REFLUX DISEASE
     Dosage: 10MG TDS
     Route: 048
     Dates: start: 202009, end: 20210313
  3. ASPIRIN. [Concomitant]
     Active Substance: ASPIRIN
  4. CARBOCYSTEINE [Concomitant]
     Active Substance: CARBOCYSTEINE
  5. SALBUTAMOL [Concomitant]
     Active Substance: ALBUTEROL
  6. CALCIUM AND VITAMIN D [Concomitant]
     Active Substance: CALCIUM\VITAMIN D
  7. DOMPERIDONE [Concomitant]
     Active Substance: DOMPERIDONE
  8. FOSTAIR [Concomitant]
     Active Substance: BECLOMETHASONE\FORMOTEROL
  9. FRUSEMIDE [Concomitant]
     Active Substance: FUROSEMIDE
  10. ATORVASTATIN [Concomitant]
     Active Substance: ATORVASTATIN
  11. VENTOLIN [Concomitant]
     Active Substance: ALBUTEROL SULFATE
  12. VITAMIN B12 [Concomitant]
     Active Substance: CYANOCOBALAMIN
  13. OMEPRAZOLE. [Interacting]
     Active Substance: OMEPRAZOLE
     Indication: DYSPEPSIA
     Dosage: 20MG
     Route: 048
     Dates: start: 201910, end: 20210313
  14. HYDROXOCOBALAMINUM [Concomitant]
  15. PREDNISOLONE. [Concomitant]
     Active Substance: PREDNISOLONE
  16. RAMIPRIL. [Concomitant]
     Active Substance: RAMIPRIL

REACTIONS (3)
  - Hypomagnesaemia [Fatal]
  - Ventricular fibrillation [Fatal]
  - Drug interaction [Fatal]

NARRATIVE: CASE EVENT DATE: 20200908
